FAERS Safety Report 10178615 (Version 1)
Quarter: 2014Q2

REPORT INFORMATION
  Report Type: Spontaneous
  Country: CA (occurrence: None)
  Receive Date: 20140516
  Receipt Date: 20140516
  Transmission Date: 20141212
  Serious: Yes (Disabling)
  Sender: FDA-Public Use
  Company Number: None

PATIENT
  Age: 22 Year
  Sex: Female
  Weight: 63.5 kg

DRUGS (1)
  1. CIPROFLOXACIN HCL [Suspect]
     Indication: GASTROINTESTINAL INFECTION
     Dosage: 1 PILL TWICE A DAY, TWICE DAILY, TAKEN BY MOUTH
     Route: 048
     Dates: start: 20140514, end: 20140515

REACTIONS (9)
  - Diarrhoea [None]
  - Nausea [None]
  - Dizziness [None]
  - Abdominal pain upper [None]
  - Muscle tightness [None]
  - Confusional state [None]
  - Anxiety [None]
  - Paranasal sinus discomfort [None]
  - Depression [None]
